FAERS Safety Report 6261521-2 (Version None)
Quarter: 2009Q3

REPORT INFORMATION
  Report Type: 
  Country: None (occurrence: None)
  Receive Date: 20090707
  Receipt Date: 20090707
  Transmission Date: 20100115
  Serious: Yes (Other)
  Sender: FDA-Public Use
  Company Number: None

PATIENT
  Sex: Female
  Weight: 105 kg

DRUGS (10)
  1. ARIMIDEX [Suspect]
     Indication: BREAST CANCER
     Dosage: 1MG QD PO
     Route: 048
     Dates: start: 20081009, end: 20090309
  2. SYNTHROID [Concomitant]
  3. ASPIRIN [Concomitant]
  4. MSM [Concomitant]
  5. ASCORBIC ACID [Concomitant]
  6. VITAMIN D [Concomitant]
  7. VITAMIN E [Concomitant]
  8. VITAMIN B COMPLEX CAP [Concomitant]
  9. MULTI-VITAMIN [Concomitant]
  10. CALCIUM [Concomitant]

REACTIONS (2)
  - ARTHRALGIA [None]
  - TENDON RUPTURE [None]
